FAERS Safety Report 5115251-0 (Version None)
Quarter: 2006Q3

REPORT INFORMATION
  Report Type: 
  Country: None (occurrence: None)
  Receive Date: 20060926
  Receipt Date: 20060920
  Transmission Date: 20061208
  Serious: Yes (Hospitalization)
  Sender: FDA-Public Use
  Company Number: TW-AVENTIS-200619839GDDC

PATIENT
  Age: 49 Year
  Sex: Female

DRUGS (5)
  1. ARAVA [Suspect]
     Indication: RHEUMATOID ARTHRITIS
     Route: 048
     Dates: start: 20060523, end: 20060914
  2. PREDNISOLON [Concomitant]
     Indication: INFLAMMATION
     Route: 048
     Dates: start: 20000626
  3. SULFASALAZINE [Concomitant]
     Indication: ARTHRITIS
     Route: 048
     Dates: start: 20000705
  4. NIMESULIDE [Concomitant]
     Indication: MYALGIA
     Route: 048
     Dates: start: 20050329
  5. METHOTREXATE [Concomitant]
     Route: 048
     Dates: start: 20000705

REACTIONS (3)
  - DIARRHOEA [None]
  - HEPATIC FUNCTION ABNORMAL [None]
  - PYREXIA [None]
